FAERS Safety Report 10051723 (Version 2)
Quarter: 2014Q2

REPORT INFORMATION
  Report Type: Spontaneous
  Country: US (occurrence: US)
  Receive Date: 20140401
  Receipt Date: 20140401
  Transmission Date: 20141212
  Serious: Yes (Disabling)
  Sender: FDA-Public Use
  Company Number: US-GE HEALTHCARE MEDICAL DIAGNOSTICS-OSCN-PR-0906S-0311

PATIENT
  Sex: Female

DRUGS (18)
  1. OMNISCAN [Suspect]
     Indication: PRODUCT USED FOR UNKNOWN INDICATION
     Route: 065
  2. GADOLINIUM (UNSPECIFIED) [Suspect]
     Indication: PRODUCT USED FOR UNKNOWN INDICATION
     Route: 065
  3. MAGNEVIST [Suspect]
     Indication: PRODUCT USED FOR UNKNOWN INDICATION
     Dates: start: 20040615, end: 20040615
  4. MAGNEVIST [Suspect]
     Dates: start: 20050617, end: 20050617
  5. MAGNEVIST [Suspect]
     Dates: start: 20051120, end: 20051120
  6. MAGNEVIST [Suspect]
     Dates: start: 20060427, end: 20060427
  7. MAGNEVIST [Suspect]
     Dates: start: 20060505, end: 20060505
  8. MAGNEVIST [Suspect]
     Dates: start: 20061106, end: 20061106
  9. MAGNEVIST [Suspect]
     Dates: start: 20061127, end: 20061127
  10. MAGNEVIST [Suspect]
     Dates: start: 20061129, end: 20061129
  11. MAGNEVIST [Suspect]
     Dates: start: 20070304, end: 20070304
  12. MAGNEVIST [Suspect]
     Dates: start: 20051118, end: 20051118
  13. OPTIMARK [Suspect]
     Route: 065
  14. MULTIHANCE [Suspect]
     Indication: PRODUCT USED FOR UNKNOWN INDICATION
     Route: 065
     Dates: start: 20070416, end: 20070416
  15. MULTIHANCE [Suspect]
     Route: 065
     Dates: start: 20070620, end: 20070620
  16. PROHANCE [Suspect]
     Route: 065
  17. PROHANCE [Suspect]
     Route: 065
  18. PROHANCE [Suspect]
     Route: 065

REACTIONS (1)
  - Nephrogenic systemic fibrosis [Not Recovered/Not Resolved]
